FAERS Safety Report 15418644 (Version 2)
Quarter: 2021Q4

REPORT INFORMATION
  Report Type: Spontaneous
  Country: NL (occurrence: NL)
  Receive Date: 20180924
  Receipt Date: 20211116
  Transmission Date: 20220303
  Serious: Yes (Death)
  Sender: FDA-Public Use
  Company Number: PHHY2018NL105863

PATIENT
  Age: 71 Year
  Sex: Male

DRUGS (5)
  1. TACROLIMUS [Suspect]
     Active Substance: TACROLIMUS
     Indication: Renal transplant
     Dosage: 4 MG, QD
     Route: 065
     Dates: start: 20170302
  2. PREDNISOLONE [Concomitant]
     Active Substance: PREDNISOLONE
     Indication: Immunosuppression
     Dosage: 5 UNITS NOT REPORTED, UNKNOWN FREQ.
     Route: 065
     Dates: start: 20160720, end: 20170412
  3. PREDNISOLONE [Concomitant]
     Active Substance: PREDNISOLONE
     Dosage: 7.5 UNITS NOT REPORTED, UNKNOWN FREQ.
     Route: 065
     Dates: start: 20170412
  4. MYCOPHENOLIC ACID [Concomitant]
     Active Substance: MYCOPHENOLIC ACID
     Indication: Immunosuppression
     Dosage: 1000 UNITS NOT REPORTED, UNKNOWN FREQ.
     Route: 065
     Dates: start: 20170111, end: 20170505
  5. MYCOPHENOLIC ACID [Concomitant]
     Active Substance: MYCOPHENOLIC ACID
     Dosage: 500 UNITS NOT REPORTED, UNKNOWN FREQ.
     Route: 065
     Dates: start: 20170505, end: 20170807

REACTIONS (1)
  - Death [Fatal]

NARRATIVE: CASE EVENT DATE: 20180101
